FAERS Safety Report 9398539 (Version 1)
Quarter: 2013Q3

REPORT INFORMATION
  Report Type: Spontaneous
  Country: DE (occurrence: DE)
  Receive Date: 20130712
  Receipt Date: 20130712
  Transmission Date: 20140515
  Serious: Yes (Other)
  Sender: FDA-Public Use
  Company Number: DE-BRISTOL-MYERS SQUIBB COMPANY-19072016

PATIENT
  Age: 29 Year
  Sex: Female
  Weight: 52 kg

DRUGS (1)
  1. ABILIFY [Suspect]
     Indication: SCHIZOPHRENIA, CATATONIC TYPE
     Dosage: (PACKAGE SIZE OF 245 TABLETS?FROM 21JUN2013 DOSE WAS INCREASED FORM 20 TO 25MG/D
     Route: 048
     Dates: start: 20130616, end: 20130628

REACTIONS (1)
  - Toxic epidermal necrolysis [Recovering/Resolving]
